FAERS Safety Report 17816128 (Version 1)
Quarter: 2020Q2

REPORT INFORMATION
  Report Type: Spontaneous
  Country: CN (occurrence: CN)
  Receive Date: 20200522
  Receipt Date: 20200522
  Transmission Date: 20200714
  Serious: Yes (Other)
  Sender: FDA-Public Use
  Company Number: CN-ROCHE-2604121

PATIENT
  Age: 78 Year
  Sex: Female

DRUGS (14)
  1. OXALIPLATIN. [Concomitant]
     Active Substance: OXALIPLATIN
     Indication: COLON CANCER
     Route: 065
     Dates: start: 20180911, end: 20181219
  2. CALCIUM FOLINATE [Concomitant]
     Active Substance: LEUCOVORIN CALCIUM
     Indication: COLON CANCER
  3. RALTITREXED [Concomitant]
     Active Substance: RALTITREXED
  4. AVASTIN [Suspect]
     Active Substance: BEVACIZUMAB
     Route: 065
     Dates: start: 20190620, end: 20190917
  5. XELODA [Suspect]
     Active Substance: CAPECITABINE
     Indication: COLON CANCER
     Route: 048
     Dates: start: 20190103, end: 20190214
  6. FLUOROURACIL. [Concomitant]
     Active Substance: FLUOROURACIL
     Indication: COLON CANCER
  7. CETUXIMAB. [Concomitant]
     Active Substance: CETUXIMAB
  8. CISPLATIN. [Concomitant]
     Active Substance: CISPLATIN
  9. AVASTIN [Suspect]
     Active Substance: BEVACIZUMAB
     Route: 065
     Dates: start: 20190103, end: 20190214
  10. OXALIPLATIN. [Concomitant]
     Active Substance: OXALIPLATIN
     Route: 065
     Dates: start: 20200108, end: 20200418
  11. AVASTIN [Suspect]
     Active Substance: BEVACIZUMAB
     Route: 065
     Dates: start: 20191011, end: 20191217
  12. XELODA [Suspect]
     Active Substance: CAPECITABINE
     Route: 048
     Dates: start: 20190620, end: 20190917
  13. OXALIPLATIN. [Concomitant]
     Active Substance: OXALIPLATIN
     Route: 065
     Dates: start: 20191011, end: 20191011
  14. AVASTIN [Suspect]
     Active Substance: BEVACIZUMAB
     Indication: COLON CANCER
     Route: 065
     Dates: start: 20180911, end: 20181219

REACTIONS (4)
  - Stomatitis [Unknown]
  - Asthenia [Unknown]
  - Neurotoxicity [Unknown]
  - Palmar-plantar erythrodysaesthesia syndrome [Unknown]
